FAERS Safety Report 6463145-0 (Version None)
Quarter: 2009Q4

REPORT INFORMATION
  Report Type: 
  Country: None (occurrence: None)
  Receive Date: 20091123
  Receipt Date: 20091106
  Transmission Date: 20100525
  Serious: Yes (Other)
  Sender: FDA-Public Use
  Company Number: 1-20260548

PATIENT
  Age: 41 Year
  Sex: Male
  Weight: 87.5442 kg

DRUGS (6)
  1. CARBAMAZEPINE EXTENDED RELEASE TABLETS USP 200MG [Suspect]
     Indication: CONVULSION
     Dosage: 600 MG TWICE DAILY, ORAL
     Route: 048
     Dates: start: 20090925
  2. CARBAMAZEPINE [Suspect]
     Indication: CONVULSION
     Dosage: 400 MG ONCE DAILY, ORAL
     Route: 048
     Dates: start: 20090925
  3. ZONEGRAN [Concomitant]
  4. HYZAAR (LOSARTAN POTASSIUM AND HYDROCHLOROTHIAZIDE) [Concomitant]
  5. TRILIPIX (FENOFIBRIC ACID) [Concomitant]
  6. CRESTOR [Concomitant]

REACTIONS (3)
  - CONTUSION [None]
  - GRAND MAL CONVULSION [None]
  - UPPER LIMB FRACTURE [None]
